FAERS Safety Report 24548070 (Version 1)
Quarter: 2024Q4

REPORT INFORMATION
  Report Type: Spontaneous
  Country: IN (occurrence: IN)
  Receive Date: 20241025
  Receipt Date: 20241025
  Transmission Date: 20250114
  Serious: No
  Sender: ALKEM
  Company Number: IN-ALKEM LABORATORIES LIMITED-IN-ALKEM-2024-20278

PATIENT
  Age: 3 Year
  Sex: Female

DRUGS (3)
  1. CLOBAZAM [Interacting]
     Active Substance: CLOBAZAM
     Indication: Seizure
     Dosage: 0.75 MILLIGRAM/KILOGRAM, QD
     Route: 065
  2. PHENYTOIN [Interacting]
     Active Substance: PHENYTOIN
     Indication: Seizure
     Dosage: UNK
     Route: 065
  3. PHENOBARBITAL [Interacting]
     Active Substance: PHENOBARBITAL
     Indication: Seizure
     Dosage: UNK
     Route: 065

REACTIONS (2)
  - Chorea [Recovered/Resolved]
  - Drug interaction [Unknown]
